FAERS Safety Report 18621977 (Version 1)
Quarter: 2020Q4

REPORT INFORMATION
  Report Type: Spontaneous
  Country: TR (occurrence: TR)
  Receive Date: 20201216
  Receipt Date: 20201216
  Transmission Date: 20210114
  Serious: Yes (Life-Threatening, Hospitalization)
  Sender: FDA-Public Use
  Company Number: TR-TEVA-2020-TR-1857886

PATIENT
  Age: 8 Year

DRUGS (7)
  1. MESNA. [Concomitant]
     Active Substance: MESNA
     Indication: PRODUCT USED FOR UNKNOWN INDICATION
     Route: 065
  2. METHYLPREDNSIOLONE [Suspect]
     Active Substance: METHYLPREDNISOLONE
     Indication: HAEMATURIA
     Dosage: LOW-DOSE AND HIGH-DOSE
     Route: 065
  3. PROPRANOLOL [Suspect]
     Active Substance: PROPRANOLOL HYDROCHLORIDE
     Indication: HAEMATURIA
     Route: 065
  4. METHYLPREDNISOLONE. [Suspect]
     Active Substance: METHYLPREDNISOLONE
     Indication: HAEMATURIA
     Route: 043
  5. CYCLOPHOSPHAMIDE. [Suspect]
     Active Substance: CYCLOPHOSPHAMIDE
     Indication: ACUTE LYMPHOCYTIC LEUKAEMIA
     Dosage: AS A PART OF HIGH RISK CHEMOTHERAPY PROTOCOL.
     Route: 065
  6. SIROLIMUS. [Suspect]
     Active Substance: SIROLIMUS
     Indication: HAEMATURIA
     Route: 065
  7. TRANEXAMIC ACID. [Suspect]
     Active Substance: TRANEXAMIC ACID
     Indication: HAEMATURIA
     Route: 043

REACTIONS (4)
  - Bladder telangiectasia [Recovered/Resolved]
  - Therapy non-responder [Unknown]
  - Cystitis haemorrhagic [Recovered/Resolved]
  - Haemorrhage [Recovered/Resolved]
